FAERS Safety Report 8555408-X (Version None)
Quarter: 2012Q3

REPORT INFORMATION
  Report Type: 
  Country: None (occurrence: None)
  Receive Date: 20120731
  Receipt Date: 20110719
  Transmission Date: 20120928
  Serious: No
  Sender: FDA-Public Use
  Company Number: US-ASTRAZENECA-2011SE32216

PATIENT
  Age: 70 Year
  Sex: Male

DRUGS (4)
  1. SEROQUEL XR [Suspect]
     Indication: PSYCHOTIC DISORDER
     Dosage: EITHER 150 MILLGRAM OR 200 MILLIGRAM
     Route: 048
  2. SEROQUEL XR [Suspect]
     Indication: BIPOLAR DISORDER
     Dosage: EITHER 150 MILLGRAM OR 200 MILLIGRAM
     Route: 048
  3. SEROQUEL XR [Suspect]
     Route: 048
     Dates: start: 20110701, end: 20110701
  4. SEROQUEL XR [Suspect]
     Route: 048
     Dates: start: 20110701, end: 20110701

REACTIONS (6)
  - OFF LABEL USE [None]
  - DISORIENTATION [None]
  - ANXIETY [None]
  - SEXUAL DYSFUNCTION [None]
  - PSYCHOTIC DISORDER [None]
  - BLOOD TESTOSTERONE DECREASED [None]
